FAERS Safety Report 21570325 (Version 2)
Quarter: 2022Q4

REPORT INFORMATION
  Report Type: Spontaneous
  Country: US (occurrence: US)
  Receive Date: 20221109
  Receipt Date: 20221124
  Transmission Date: 20230113
  Serious: Yes (Other)
  Sender: FDA-Public Use
  Company Number: US-COSETTE-CP2022US000287

PATIENT
  Age: 55 Year
  Sex: Female
  Weight: 213 kg

DRUGS (1)
  1. TRIAMCINOLONE ACETONIDE [Suspect]
     Active Substance: TRIAMCINOLONE ACETONIDE
     Indication: Dry skin
     Route: 061
     Dates: start: 20221018, end: 20221019

REACTIONS (10)
  - Skin burning sensation [Recovering/Resolving]
  - Erythema [Recovering/Resolving]
  - Furuncle [Recovering/Resolving]
  - Inflammation [Recovering/Resolving]
  - Pruritus [Recovering/Resolving]
  - Skin exfoliation [Recovering/Resolving]
  - Peripheral swelling [Recovering/Resolving]
  - Skin disorder [Unknown]
  - Pain [Unknown]
  - Scar [Unknown]

NARRATIVE: CASE EVENT DATE: 20221018
